FAERS Safety Report 8602935 (Version 4)
Quarter: 2013Q1

REPORT INFORMATION
  Report Type: Spontaneous
  Country: GB (occurrence: GB)
  Receive Date: 20120607
  Receipt Date: 20130117
  Transmission Date: 20140127
  Serious: Yes (Life-Threatening, Hospitalization, Other)
  Sender: FDA-Public Use
  Company Number: PHFR2012GB003302

PATIENT
  Sex: Female
  Weight: 88.9 kg

DRUGS (8)
  1. CLOZARIL [Suspect]
     Indication: SCHIZOPHRENIA
     Dosage: 500 MG
     Route: 048
     Dates: start: 20010701, end: 20120629
  2. CLOZARIL [Suspect]
     Route: 048
     Dates: start: 20010701, end: 20120629
  3. LITHIUM CARBONATE [Suspect]
     Indication: BIPOLAR DISORDER
     Dosage: 1 G
     Route: 048
     Dates: end: 20120705
  4. LITHIUM CARBONATE [Suspect]
     Dates: end: 20120705
  5. SERTRALINE [Concomitant]
     Indication: DEPRESSION
     Dosage: 50 MG
     Route: 048
  6. DEPAKOTE [Concomitant]
     Indication: BIPOLAR DISORDER
     Dosage: 1250 MG
     Route: 048
     Dates: start: 201206
  7. FERROUS FUMARATE [Concomitant]
     Indication: ANAEMIA
     Route: 048
     Dates: start: 201208
  8. QUETIAPINE [Concomitant]
     Indication: SCHIZOPHRENIA
     Dosage: 600 MG
     Route: 048
     Dates: start: 201208

REACTIONS (7)
  - Renal failure chronic [Not Recovered/Not Resolved]
  - Anaemia [Not Recovered/Not Resolved]
  - Toxicity to various agents [Unknown]
  - Blood prolactin increased [Unknown]
  - Alcoholism [Unknown]
  - Blood alkaline phosphatase increased [Unknown]
  - Gamma-glutamyltransferase increased [Unknown]
